FAERS Safety Report 7223196-5 (Version None)
Quarter: 2011Q1

REPORT INFORMATION
  Report Type: 
  Country: None (occurrence: None)
  Receive Date: 20110112
  Receipt Date: 20100304
  Transmission Date: 20110831
  Serious: No
  Sender: FDA-Public Use
  Company Number: US-ALLERGAN-1002850US

PATIENT
  Age: 60 Year
  Sex: Female

DRUGS (2)
  1. SPIRONOLACTONE [Concomitant]
     Indication: HYPERTENSION
  2. RESTASIS [Suspect]
     Indication: DRY EYE
     Dosage: UNK
     Dates: start: 20060101, end: 20100103

REACTIONS (2)
  - EYE INFLAMMATION [None]
  - ARTHRALGIA [None]
